FAERS Safety Report 22645590 (Version 2)
Quarter: 2024Q1

REPORT INFORMATION
  Report Type: Report from Study
  Country: FR (occurrence: FR)
  Receive Date: 20230627
  Receipt Date: 20240223
  Transmission Date: 20240410
  Serious: Yes (Hospitalization)
  Sender: FDA-Public Use
  Company Number: FR-002147023-NVSC2023FR124237

PATIENT
  Age: 71 Year
  Sex: Female
  Weight: 86.9 kg

DRUGS (1)
  1. PREDNISONE [Suspect]
     Active Substance: PREDNISONE
     Indication: Giant cell arteritis
     Dosage: UNK
     Route: 065
     Dates: start: 20230523, end: 20230601

REACTIONS (1)
  - Atrial fibrillation [Recovered/Resolved]

NARRATIVE: CASE EVENT DATE: 20230527
